FAERS Safety Report 9605342 (Version 1)
Quarter: 2013Q4

REPORT INFORMATION
  Report Type: Spontaneous
  Country: CA (occurrence: CA)
  Receive Date: 20131008
  Receipt Date: 20131008
  Transmission Date: 20140711
  Serious: Yes (Hospitalization, Other)
  Sender: FDA-Public Use
  Company Number: CA-BRISTOL-MYERS SQUIBB COMPANY-19459098

PATIENT
  Sex: Female

DRUGS (3)
  1. ABILIFY [Suspect]
     Indication: BIPOLAR I DISORDER
     Dosage: SHE STARTED ON A DOSE OF 1MG FOR TWO WEEKS AND THEN HER DOSE INCREASED TO 2MG
  2. LITHIUM [Concomitant]
  3. PRISTIQ [Concomitant]

REACTIONS (1)
  - Mania [Unknown]
